FAERS Safety Report 8826457 (Version 1)
Quarter: 2012Q4

REPORT INFORMATION
  Report Type: 
  Country: JP (occurrence: JP)
  Receive Date: 20121005
  Receipt Date: 20121005
  Transmission Date: 20130627
  Serious: Yes (Other)
  Sender: FDA-Public Use
  Company Number: JP-PFIZER INC-2012242094

PATIENT
  Age: 4 Year
  Sex: Female

DRUGS (1)
  1. GENOTROPIN TC [Suspect]
     Dosage: 0.6 mg, UNK
     Route: 058

REACTIONS (2)
  - Scar [Unknown]
  - Injection site haemorrhage [Unknown]
